FAERS Safety Report 16880039 (Version 1)
Quarter: 2019Q4

REPORT INFORMATION
  Report Type: Spontaneous
  Country: DK (occurrence: DK)
  Receive Date: 20191003
  Receipt Date: 20191003
  Transmission Date: 20200122
  Serious: Yes (Hospitalization, Other)
  Sender: FDA-Public Use
  Company Number: DK-ACCORD-156162

PATIENT
  Age: 64 Year
  Sex: Male

DRUGS (11)
  1. BASILIXIMAB [Suspect]
     Active Substance: BASILIXIMAB
     Indication: IMMUNOSUPPRESSANT DRUG THERAPY
     Dosage: JUST BEFORE RTX
     Dates: start: 2017
  2. BASILIXIMAB [Suspect]
     Active Substance: BASILIXIMAB
     Indication: IMMUNOSUPPRESSANT DRUG THERAPY
     Dosage: ON DAY 4 AFTER RENAL TRANSPLANTATION AS INDUCTION THERAPY
     Dates: start: 2017
  3. SULFAMETHOXAZOLE/TRIMETHOPRIM [Concomitant]
     Indication: ANTIBIOTIC PROPHYLAXIS
     Dates: start: 2017
  4. MYCOPHENOLATE MOFETIL. [Suspect]
     Active Substance: MYCOPHENOLATE MOFETIL
     Indication: IMMUNOSUPPRESSANT DRUG THERAPY
  5. MYCOPHENOLIC ACID. [Suspect]
     Active Substance: MYCOPHENOLIC ACID
     Indication: IMMUNOSUPPRESSANT DRUG THERAPY
     Dates: start: 2017
  6. TACROLIMUS. [Suspect]
     Active Substance: TACROLIMUS
     Indication: IMMUNOSUPPRESSANT DRUG THERAPY
     Dates: start: 2017
  7. PREDNISOLONE. [Suspect]
     Active Substance: PREDNISOLONE
     Indication: IMMUNOSUPPRESSANT DRUG THERAPY
     Dosage: TAPERED
  8. CEFUROXIME. [Concomitant]
     Active Substance: CEFUROXIME
     Indication: ANTIBIOTIC PROPHYLAXIS
     Dates: start: 2017
  9. MYCOPHENOLATE MOFETIL. [Suspect]
     Active Substance: MYCOPHENOLATE MOFETIL
     Indication: IMMUNOSUPPRESSANT DRUG THERAPY
  10. PREDNISOLONE. [Suspect]
     Active Substance: PREDNISOLONE
     Indication: IMMUNOSUPPRESSANT DRUG THERAPY
     Dates: start: 2017
  11. TACROLIMUS. [Suspect]
     Active Substance: TACROLIMUS
     Indication: IMMUNOSUPPRESSANT DRUG THERAPY

REACTIONS (8)
  - Urosepsis [Recovered/Resolved]
  - Urinary tract infection [Recovered/Resolved]
  - Kidney fibrosis [Recovered/Resolved]
  - Nephrosclerosis [Recovered/Resolved]
  - Renal tubular atrophy [Recovered/Resolved]
  - Klebsiella infection [Recovered/Resolved]
  - Clostridium difficile infection [Recovered/Resolved]
  - Bacteraemia [Recovered/Resolved]
